FAERS Safety Report 4506085-6 (Version None)
Quarter: 2004Q4

REPORT INFORMATION
  Report Type: 
  Country: None (occurrence: None)
  Receive Date: 20041025
  Receipt Date: 20040730
  Transmission Date: 20050328
  Serious: Yes (Other)
  Sender: FDA-Public Use
  Company Number: US-JNJFOC-20040501383

PATIENT
  Age: 61 Year
  Sex: Female
  Weight: 96.1626 kg

DRUGS (5)
  1. REMICADE [Suspect]
     Indication: RHEUMATOID ARTHRITIS
     Dosage: 500 MG, 17 IN, INTRAVENOUS
     Route: 042
     Dates: start: 20020218, end: 20040413
  2. LEFLUNOMIDE [Concomitant]
  3. METHOTREXATE [Concomitant]
  4. VIOXX [Concomitant]
  5. PREDNISONE [Concomitant]

REACTIONS (1)
  - B-CELL LYMPHOMA [None]
